FAERS Safety Report 9377070 (Version 1)
Quarter: 2013Q3

REPORT INFORMATION
  Report Type: Spontaneous
  Country: FR (occurrence: FR)
  Receive Date: 20130701
  Receipt Date: 20130701
  Transmission Date: 20140515
  Serious: Yes (Hospitalization)
  Sender: FDA-Public Use
  Company Number: FR-ROCHE-1242284

PATIENT
  Age: 63 Year
  Sex: Female

DRUGS (7)
  1. MABTHERA [Suspect]
     Indication: B-CELL LYMPHOMA
     Route: 042
     Dates: start: 20080627, end: 20111027
  2. MABTHERA [Suspect]
     Route: 042
     Dates: start: 201002, end: 201110
  3. PREDNIMUSTINE [Suspect]
     Indication: B-CELL LYMPHOMA
     Dosage: 300 MG PER DAY, FOR 5 DAYS PER MONTH
     Route: 048
     Dates: start: 198810, end: 199003
  4. ADRIBLASTINE [Suspect]
     Indication: B-CELL LYMPHOMA
     Route: 042
     Dates: start: 20090908, end: 20091222
  5. ENDOXAN [Suspect]
     Indication: B-CELL LYMPHOMA
     Route: 042
     Dates: start: 20090908, end: 20091222
  6. VINCRISTINE SULFATE [Suspect]
     Indication: B-CELL LYMPHOMA
     Route: 042
     Dates: start: 20090908, end: 20091222
  7. PREVISCAN (FRANCE) [Concomitant]
     Indication: THROMBOSIS PROPHYLAXIS
     Route: 065
     Dates: start: 2009

REACTIONS (1)
  - Squamous cell carcinoma of the cervix [Not Recovered/Not Resolved]
